FAERS Safety Report 4448003-5 (Version None)
Quarter: 2004Q3

REPORT INFORMATION
  Report Type: 
  Country: None (occurrence: None)
  Receive Date: 20040913
  Receipt Date: 20040908
  Transmission Date: 20050211
  Serious: Yes (Hospitalization)
  Sender: FDA-Public Use
  Company Number: LB-MERCK-0409USA00485

PATIENT

DRUGS (4)
  1. ASPIRIN [Concomitant]
     Route: 065
  2. CAPOTEN [Concomitant]
     Route: 065
  3. CORVASAL [Concomitant]
     Route: 065
  4. ZOCOR [Suspect]
     Route: 048

REACTIONS (3)
  - CHEST PAIN [None]
  - HAEMOPTYSIS [None]
  - PULMONARY MASS [None]
